FAERS Safety Report 5533779-6 (Version None)
Quarter: 2007Q4

REPORT INFORMATION
  Report Type: 
  Country: None (occurrence: None)
  Receive Date: 20071204
  Receipt Date: 20071126
  Transmission Date: 20080405
  Serious: Yes (Hospitalization, Other)
  Sender: FDA-Public Use
  Company Number: US-ELI_LILLY_AND_COMPANY-US200711006019

PATIENT
  Sex: Female
  Weight: 70.295 kg

DRUGS (4)
  1. BYETTA [Suspect]
     Dosage: 5 UG, 2/D
     Route: 058
     Dates: start: 20070201, end: 20070301
  2. BYETTA [Suspect]
     Dosage: 10 UG, 2/D
     Route: 058
     Dates: start: 20070301, end: 20070401
  3. BYETTA [Suspect]
     Dosage: 5 UG, 2/D
     Route: 058
     Dates: start: 20071114
  4. LANTUS [Concomitant]
     Dosage: 30 U, DAILY (1/D)

REACTIONS (9)
  - CELLULITIS [None]
  - DECREASED APPETITE [None]
  - FATIGUE [None]
  - HYPERTENSION [None]
  - HYPOGLYCAEMIC UNCONSCIOUSNESS [None]
  - NEPHROLITHIASIS [None]
  - OEDEMA PERIPHERAL [None]
  - RENAL FAILURE [None]
  - THROMBOSIS [None]
